FAERS Safety Report 7765939-8 (Version None)
Quarter: 2011Q3

REPORT INFORMATION
  Report Type: 
  Country: None (occurrence: None)
  Receive Date: 20110921
  Receipt Date: 20110906
  Transmission Date: 20111222
  Serious: Yes (Other)
  Sender: FDA-Public Use
  Company Number: DE-WATSON-2011-14805

PATIENT
  Age: 64 Year
  Sex: Male

DRUGS (2)
  1. RAPAFLO [Suspect]
     Indication: PRODUCT USED FOR UNKNOWN INDICATION
     Dosage: 4MG QD
     Route: 048
     Dates: start: 20101129
  2. TAMSULOSIN HCL [Concomitant]
     Indication: URINARY TRACT OBSTRUCTION
     Dosage: UNK
     Route: 065

REACTIONS (2)
  - ARRHYTHMIA [None]
  - DIZZINESS [None]
